FAERS Safety Report 11830377 (Version 3)
Quarter: 2015Q4

REPORT INFORMATION
  Report Type: Spontaneous
  Country: US (occurrence: US)
  Receive Date: 20151214
  Receipt Date: 20151214
  Transmission Date: 20160305
  Serious: Yes (Disabling, Other)
  Sender: FDA-Public Use
  Company Number: US-JNJFOC-20151108322

PATIENT
  Age: 52 Year
  Sex: Female
  Weight: 65.9 kg

DRUGS (1)
  1. LEVAQUIN [Suspect]
     Active Substance: LEVOFLOXACIN
     Indication: SINUSITIS
     Route: 048
     Dates: start: 20101225, end: 20101229

REACTIONS (19)
  - Flank pain [Unknown]
  - Lip swelling [Unknown]
  - Hyperhidrosis [Unknown]
  - Dyskinesia [Unknown]
  - Trigger finger [Unknown]
  - Tinnitus [Unknown]
  - Rotator cuff syndrome [Unknown]
  - Skin odour abnormal [Unknown]
  - Muscle twitching [Unknown]
  - Skin burning sensation [Unknown]
  - Headache [Unknown]
  - Peripheral swelling [Unknown]
  - Swelling face [Unknown]
  - Rash macular [Unknown]
  - Anxiety [Unknown]
  - Myalgia [Unknown]
  - Bone pain [Unknown]
  - Arthralgia [Unknown]
  - Depression [Unknown]

NARRATIVE: CASE EVENT DATE: 201012
